FAERS Safety Report 11792047 (Version 1)
Quarter: 2015Q4

REPORT INFORMATION
  Report Type: Spontaneous
  Country: CA (occurrence: CA)
  Receive Date: 20151201
  Receipt Date: 20151201
  Transmission Date: 20160305
  Serious: Yes (Other)
  Sender: FDA-Public Use
  Company Number: CA-TEVA-613023ACC

PATIENT
  Age: 77 Year
  Sex: Male
  Weight: 90 kg

DRUGS (2)
  1. ETOPOSIDE INJECTION USP [Suspect]
     Active Substance: ETOPOSIDE
     Indication: PRODUCT USED FOR UNKNOWN INDICATION
     Route: 042
  2. BENADRYL [Concomitant]
     Active Substance: DIPHENHYDRAMINE HYDROCHLORIDE

REACTIONS (3)
  - Blood pressure increased [Recovered/Resolved]
  - Dizziness [Recovered/Resolved]
  - Erythema [Recovered/Resolved]
